APPROVED DRUG PRODUCT: HYDROCORTISONE
Active Ingredient: HYDROCORTISONE
Strength: 10MG
Dosage Form/Route: TABLET;ORAL
Application: A040646 | Product #002 | TE Code: AB
Applicant: IMPAX LABORATORIES INC
Approved: Mar 30, 2007 | RLD: No | RS: No | Type: RX